FAERS Safety Report 16582133 (Version 2)
Quarter: 2019Q3

REPORT INFORMATION
  Report Type: Report from Study
  Country: BD (occurrence: BD)
  Receive Date: 20190717
  Receipt Date: 20190719
  Transmission Date: 20191004
  Serious: Yes (Death)
  Sender: FDA-Public Use
  Company Number: PHHY2019BD163956

PATIENT
  Age: 39 Year
  Sex: Female

DRUGS (1)
  1. FEMARA [Suspect]
     Active Substance: LETROZOLE
     Indication: BREAST CANCER
     Dosage: 1 DF, QD
     Route: 048
     Dates: start: 2014

REACTIONS (1)
  - Cardiac arrest [Fatal]
